FAERS Safety Report 25311338 (Version 1)
Quarter: 2025Q2

REPORT INFORMATION
  Report Type: Spontaneous
  Country: ES (occurrence: ES)
  Receive Date: 20250514
  Receipt Date: 20250514
  Transmission Date: 20250716
  Serious: Yes (Death, Other)
  Sender: AMGEN
  Company Number: ES-AMGEN-ESPSP2025090213

PATIENT
  Age: 45 Year
  Sex: Female

DRUGS (4)
  1. CARFILZOMIB [Suspect]
     Active Substance: CARFILZOMIB
     Indication: Plasma cell myeloma
     Route: 065
  2. ISATUXIMAB [Concomitant]
     Active Substance: ISATUXIMAB
     Indication: Plasma cell myeloma
     Route: 065
  3. DEXAMETHASONE [Concomitant]
     Active Substance: DEXAMETHASONE
     Indication: Plasma cell myeloma
     Route: 065
  4. Polymethylmethacrylate [Concomitant]
     Indication: Light chain analysis increased

REACTIONS (3)
  - Death [Fatal]
  - Acute kidney injury [Not Recovered/Not Resolved]
  - Light chain analysis increased [Not Recovered/Not Resolved]
